FAERS Safety Report 6853627-1 (Version None)
Quarter: 2010Q3

REPORT INFORMATION
  Report Type: 
  Country: None (occurrence: None)
  Receive Date: 20100717
  Receipt Date: 20071212
  Transmission Date: 20110219
  Serious: No
  Sender: FDA-Public Use
  Company Number: US-PFIZER INC-2007106262

PATIENT
  Sex: Female
  Weight: 95.3 kg

DRUGS (5)
  1. CHANTIX [Suspect]
     Indication: SMOKING CESSATION THERAPY
     Dates: start: 20070929, end: 20071101
  2. EFFEXOR [Concomitant]
  3. MULTI-VITAMINS [Concomitant]
  4. LOVAZA [Concomitant]
  5. SYNTHROID [Concomitant]

REACTIONS (5)
  - CHILD ABUSE [None]
  - DEPRESSION [None]
  - DYSGEUSIA [None]
  - NERVOUSNESS [None]
  - SLEEP DISORDER [None]
